FAERS Safety Report 12925888 (Version 3)
Quarter: 2019Q2

REPORT INFORMATION
  Report Type: Spontaneous
  Country: US (occurrence: US)
  Receive Date: 20161108
  Receipt Date: 20190606
  Transmission Date: 20190711
  Serious: Yes (Hospitalization)
  Sender: FDA-Public Use
  Company Number: US-SA-2016SA174734

PATIENT
  Age: 70 Year
  Sex: Male

DRUGS (9)
  1. INSULIN GLARGINE [Concomitant]
     Active Substance: INSULIN GLARGINE
     Dosage: 100 U/ML
     Route: 058
     Dates: start: 20150311
  2. PRALUENT [Suspect]
     Active Substance: ALIROCUMAB
     Indication: HYPERLIPIDAEMIA
     Dosage: 75 MG, QOW
     Route: 058
     Dates: start: 20161129
  3. ACETYLSALICYLIC ACID [Concomitant]
     Active Substance: ASPIRIN
     Dosage: 81 MG,QD
     Route: 048
     Dates: start: 20150311
  4. WARFARIN [Concomitant]
     Active Substance: WARFARIN
     Dosage: 5 MG,UNK
     Route: 048
     Dates: start: 20150311
  5. PRALUENT [Suspect]
     Active Substance: ALIROCUMAB
     Indication: BLOOD CHOLESTEROL INCREASED
     Dosage: 75 MG,QOW
     Route: 058
     Dates: start: 20160904
  6. PRALUENT [Suspect]
     Active Substance: ALIROCUMAB
     Indication: ARTERIOSCLEROSIS
  7. SOLOSTAR [Concomitant]
     Active Substance: DEVICE
     Dates: start: 20150311
  8. WARFARIN [Concomitant]
     Active Substance: WARFARIN
     Dosage: 7.5 MG,QW
     Route: 065
     Dates: start: 20150311
  9. INSULIN LISPRO [Concomitant]
     Active Substance: INSULIN LISPRO
     Dosage: UNK UNK,PRN
     Route: 058
     Dates: start: 20150311

REACTIONS (2)
  - Hospitalisation [Unknown]
  - Therapeutic response unexpected [Unknown]

NARRATIVE: CASE EVENT DATE: 20160918
